FAERS Safety Report 8444029-5 (Version None)
Quarter: 2012Q2

REPORT INFORMATION
  Report Type: 
  Country: None (occurrence: None)
  Receive Date: 20120323
  Receipt Date: 20110707
  Transmission Date: 20120825
  Serious: Yes (Hospitalization)
  Sender: FDA-Public Use
  Company Number: 163-21880-11070734

PATIENT
  Age: 78 Year
  Sex: Male

DRUGS (4)
  1. ALLOPURINOL [Concomitant]
  2. REVLIMID [Suspect]
     Indication: MULTIPLE MYELOMA
     Dosage: 10 MG, 1 IN 1 D, PO
     Route: 048
     Dates: start: 20101112
  3. DILTIAZEM HCL [Concomitant]
  4. LEVETIRACETAM [Concomitant]

REACTIONS (2)
  - BACK PAIN [None]
  - CEREBROVASCULAR ACCIDENT [None]
